FAERS Safety Report 21153821 (Version 1)
Quarter: 2022Q3

REPORT INFORMATION
  Report Type: Spontaneous
  Country: US (occurrence: US)
  Receive Date: 20220801
  Receipt Date: 20220801
  Transmission Date: 20221027
  Serious: Yes (Other)
  Sender: FDA-Public Use
  Company Number: US-CELLTRION INC.-2022US011810

PATIENT

DRUGS (3)
  1. TRUXIMA [Suspect]
     Active Substance: RITUXIMAB-ABBS
     Indication: Waldenstrom^s macroglobulinaemia
     Dosage: 184 MG Q4 WEEKS
     Dates: start: 20220714
  2. TRUXIMA [Suspect]
     Active Substance: RITUXIMAB-ABBS
     Dosage: 761MG Q4WEEKS
  3. BENDEKA [Suspect]
     Active Substance: BENDAMUSTINE HYDROCHLORIDE
     Indication: Product used for unknown indication
     Dosage: UNK MILLIGRAM PER MILLILITRE

REACTIONS (2)
  - Waldenstrom^s macroglobulinaemia [Unknown]
  - Off label use [Unknown]
